FAERS Safety Report 6817880-2 (Version None)
Quarter: 2010Q3

REPORT INFORMATION
  Report Type: 
  Country: None (occurrence: None)
  Receive Date: 20100706
  Receipt Date: 20100701
  Transmission Date: 20110219
  Serious: Yes (Other)
  Sender: FDA-Public Use
  Company Number: IT-BRISTOL-MYERS SQUIBB COMPANY-15175664

PATIENT
  Age: 80 Year
  Sex: Male

DRUGS (5)
  1. SPRYCEL [Suspect]
     Indication: CHRONIC MYELOID LEUKAEMIA
     Dosage: 07NOV2008 TO 01JUL2010
     Route: 048
     Dates: start: 20081107
  2. DELTACORTENE [Suspect]
  3. LANSOPRAZOLE [Concomitant]
  4. LASIX [Concomitant]
     Dosage: TABS
  5. DILTIAZEM [Concomitant]
     Dosage: MODIFIED RELEASE TABS

REACTIONS (1)
  - DIABETES MELLITUS [None]
